FAERS Safety Report 23888292 (Version 1)
Quarter: 2024Q2

REPORT INFORMATION
  Report Type: Spontaneous
  Country: JP (occurrence: JP)
  Receive Date: 20240523
  Receipt Date: 20240523
  Transmission Date: 20240716
  Serious: Yes (Hospitalization, Other)
  Sender: FDA-Public Use
  Company Number: JP-MACLEODS PHARMA-MAC2024046728

PATIENT

DRUGS (7)
  1. CELECOXIB [Suspect]
     Active Substance: CELECOXIB
     Indication: Product used for unknown indication
     Dosage: UNK
     Route: 065
  2. ACETAMINOPHEN [Concomitant]
     Active Substance: ACETAMINOPHEN
     Indication: Product used for unknown indication
     Dosage: UNK ((PL COMBINATION TABLETS)
     Route: 065
  3. Metrol [Concomitant]
     Indication: Product used for unknown indication
     Route: 065
  4. Metrol [Concomitant]
     Dosage: DOSE INCREASED
     Route: 065
  5. Metrol [Concomitant]
     Dosage: DOSE REDUCED
     Route: 065
  6. LEVOFLOXACIN [Concomitant]
     Active Substance: LEVOFLOXACIN
     Indication: Product used for unknown indication
     Route: 065
  7. PROPYPHENAZONE [Concomitant]
     Active Substance: PROPYPHENAZONE
     Indication: Product used for unknown indication
     Dosage: SG GRANULES
     Route: 065

REACTIONS (2)
  - Spinal epidural haematoma [Recovered/Resolved]
  - Meningitis aseptic [Recovered/Resolved]
